FAERS Safety Report 15314140 (Version 1)
Quarter: 2018Q3

REPORT INFORMATION
  Report Type: Spontaneous
  Country: JP (occurrence: JP)
  Receive Date: 20180824
  Receipt Date: 20180824
  Transmission Date: 20181010
  Serious: Yes (Other)
  Sender: FDA-Public Use
  Company Number: JP-ROCHE-2173344

PATIENT
  Age: 85 Year
  Sex: Female

DRUGS (2)
  1. BONOTEO [Concomitant]
     Active Substance: MINODRONIC ACID
     Route: 065
     Dates: start: 2014
  2. BONVIVA [Suspect]
     Active Substance: IBANDRONATE SODIUM
     Indication: PRODUCT USED FOR UNKNOWN INDICATION
     Route: 048
     Dates: start: 2016

REACTIONS (2)
  - Tooth disorder [Unknown]
  - Exostosis [Unknown]
